FAERS Safety Report 15941034 (Version 4)
Quarter: 2019Q2

REPORT INFORMATION
  Report Type: Spontaneous
  Country: US (occurrence: US)
  Receive Date: 20190208
  Receipt Date: 20190415
  Transmission Date: 20190711
  Serious: Yes (Other)
  Sender: FDA-Public Use
  Company Number: US-ASTRAZENECA-2018SF25729

PATIENT
  Age: 21525 Day
  Sex: Female
  Weight: 88 kg

DRUGS (29)
  1. ACYCLOVIR. [Concomitant]
     Active Substance: ACYCLOVIR
  2. CHOLECALCIFEROL [Concomitant]
     Active Substance: CHOLECALCIFEROL
  3. DOLUTEGRAVIR SODIUM [Concomitant]
     Active Substance: DOLUTEGRAVIR SODIUM
  4. CARISOPRODOL. [Concomitant]
     Active Substance: CARISOPRODOL
  5. DOXYCYCLINE. [Concomitant]
     Active Substance: DOXYCYCLINE
  6. NEXIUM 24HR [Suspect]
     Active Substance: ESOMEPRAZOLE MAGNESIUM
     Route: 048
  7. SPIRONOLACTONE. [Concomitant]
     Active Substance: SPIRONOLACTONE
  8. NEXIUM [Suspect]
     Active Substance: ESOMEPRAZOLE MAGNESIUM
     Route: 048
  9. AMLODIPINE [Concomitant]
     Active Substance: AMLODIPINE BESYLATE
  10. FLUCONAZOLE. [Concomitant]
     Active Substance: FLUCONAZOLE
  11. TORSEMIDE. [Concomitant]
     Active Substance: TORSEMIDE
  12. VALSARTAN. [Concomitant]
     Active Substance: VALSARTAN
  13. PRILOSEC [Suspect]
     Active Substance: OMEPRAZOLE MAGNESIUM
     Indication: GASTROOESOPHAGEAL REFLUX DISEASE
     Route: 048
     Dates: start: 201702, end: 201703
  14. AMLODIPINE [Concomitant]
     Active Substance: AMLODIPINE BESYLATE
  15. HEPARIN [Concomitant]
     Active Substance: HEPARIN SODIUM
  16. VALSARTAN. [Concomitant]
     Active Substance: VALSARTAN
  17. PRILOSEC [Suspect]
     Active Substance: OMEPRAZOLE MAGNESIUM
     Indication: GASTROOESOPHAGEAL REFLUX DISEASE
     Route: 048
     Dates: start: 201702, end: 201703
  18. LISINOPRIL. [Concomitant]
     Active Substance: LISINOPRIL
  19. CARVEDILOL. [Concomitant]
     Active Substance: CARVEDILOL
  20. NEXIUM I.V. [Suspect]
     Active Substance: ESOMEPRAZOLE SODIUM
     Route: 042
  21. PRILOSEC [Suspect]
     Active Substance: OMEPRAZOLE MAGNESIUM
     Indication: GASTROOESOPHAGEAL REFLUX DISEASE
     Route: 048
     Dates: start: 20170202, end: 20170313
  22. TRAMADOL. [Concomitant]
     Active Substance: TRAMADOL
  23. PRILOSEC [Suspect]
     Active Substance: OMEPRAZOLE MAGNESIUM
     Indication: GASTROOESOPHAGEAL REFLUX DISEASE
     Route: 048
     Dates: start: 20170202, end: 20170313
  24. ABACAVIR. [Concomitant]
     Active Substance: ABACAVIR
  25. CARVEDILOL. [Concomitant]
     Active Substance: CARVEDILOL
  26. METOPROLOL. [Concomitant]
     Active Substance: METOPROLOL
  27. ATORVASTATIN [Concomitant]
     Active Substance: ATORVASTATIN
  28. DIAZEPAM. [Concomitant]
     Active Substance: DIAZEPAM
  29. VERAPAMIL [Concomitant]
     Active Substance: VERAPAMIL HYDROCHLORIDE

REACTIONS (6)
  - End stage renal disease [Not Recovered/Not Resolved]
  - Acute kidney injury [Not Recovered/Not Resolved]
  - Hyperparathyroidism secondary [Unknown]
  - Nephrogenic anaemia [Unknown]
  - Renal injury [Unknown]
  - Chronic kidney disease [Not Recovered/Not Resolved]

NARRATIVE: CASE EVENT DATE: 20170608
